FAERS Safety Report 4777320-4 (Version None)
Quarter: 2005Q3

REPORT INFORMATION
  Report Type: 
  Country: None (occurrence: None)
  Receive Date: 20050923
  Receipt Date: 20050627
  Transmission Date: 20060218
  Serious: Yes (Hospitalization, Other)
  Sender: FDA-Public Use
  Company Number: US-BRISTOL-MYERS SQUIBB COMPANY-13017454

PATIENT
  Age: 47 Year
  Sex: Female
  Weight: 40 kg

DRUGS (16)
  1. CETUXIMAB [Suspect]
     Indication: NON-SMALL CELL LUNG CANCER
     Dosage: THERAPY START DATE 29-MAR-05. GIVEN DAYS 1, 8 + 15.
     Route: 042
     Dates: start: 20050608, end: 20050608
  2. CARBOPLATIN [Suspect]
     Indication: NON-SMALL CELL LUNG CANCER
     Dosage: THERAPY START DATE 29-MAR-2005. GIVEN ON DAY 1.
     Route: 042
     Dates: start: 20050601, end: 20050601
  3. DOCETAXEL [Suspect]
     Indication: NON-SMALL CELL LUNG CANCER
     Dosage: THERAPY START DATE 29-MAR-2005. GIVEN ON DAY 1.
     Route: 042
     Dates: start: 20050601, end: 20050601
  4. DILANTIN [Suspect]
     Indication: CONVULSION
     Route: 048
  5. SPIRIVA [Concomitant]
  6. KLONOPIN [Concomitant]
     Indication: HYPERTENSION
     Route: 048
  7. DURAGESIC-100 [Concomitant]
     Indication: PAIN
     Dosage: 100 MCG, TWO PATCHES EVERY 48 HOURS.
     Route: 061
  8. ZOLOFT [Concomitant]
     Indication: DEPRESSION
     Route: 048
  9. PHENERGAN [Concomitant]
     Dosage: 25 MG EVERY 6 HOURS AS NEEDED
     Route: 048
  10. OXYCONTIN [Concomitant]
     Indication: PAIN
     Route: 048
  11. ADVAIR DISKUS 100/50 [Concomitant]
     Indication: CHRONIC OBSTRUCTIVE PULMONARY DISEASE
     Dosage: 250/50 ONE INHALATION TWICE PER DAY
  12. PHENOBARBITAL TAB [Concomitant]
     Route: 048
  13. SOMA [Concomitant]
     Indication: PAIN
     Dosage: DOSAGE FORM = 1 TABLET
     Route: 048
  14. BENADRYL [Concomitant]
     Indication: PREMEDICATION
     Route: 042
  15. DECADRON [Concomitant]
     Indication: PREMEDICATION
     Route: 042
  16. KYTRIL [Concomitant]
     Indication: PREMEDICATION
     Route: 048

REACTIONS (4)
  - CEREBRAL ATROPHY [None]
  - DRUG TOXICITY [None]
  - GAIT DISTURBANCE [None]
  - PNEUMONIA [None]
